FAERS Safety Report 14409741 (Version 1)
Quarter: 2018Q1

REPORT INFORMATION
  Report Type: Report from Study
  Country: AR (occurrence: AR)
  Receive Date: 20180119
  Receipt Date: 20180119
  Transmission Date: 20180509
  Serious: Yes (Hospitalization, Other)
  Sender: FDA-Public Use
  Company Number: AR-ROCHE-2004151

PATIENT
  Age: 70 Year
  Sex: Female

DRUGS (1)
  1. HERCEPTIN [Suspect]
     Active Substance: TRASTUZUMAB
     Indication: BREAST CANCER
     Route: 058
     Dates: start: 201709

REACTIONS (8)
  - General physical health deterioration [Unknown]
  - Cardiac valve disease [Unknown]
  - Swelling [Recovered/Resolved]
  - Limb discomfort [Unknown]
  - Asthenia [Unknown]
  - Fluid retention [Unknown]
  - Agitation [Unknown]
  - Fatigue [Unknown]

NARRATIVE: CASE EVENT DATE: 201709
